FAERS Safety Report 20040767 (Version 1)
Quarter: 2021Q4

REPORT INFORMATION
  Report Type: Spontaneous
  Country: GB (occurrence: GB)
  Receive Date: 20211107
  Receipt Date: 20211107
  Transmission Date: 20220304
  Serious: Yes (Life-Threatening)
  Sender: FDA-Public Use
  Company Number: GB-MHRA-EYC 00264214

PATIENT
  Age: 40 Year
  Sex: Male
  Weight: 88.9 kg

DRUGS (1)
  1. PAROXETINE [Suspect]
     Active Substance: PAROXETINE
     Indication: Anxiety
     Dosage: 30 MILLIGRAM
     Route: 048
     Dates: start: 20000303, end: 20210315

REACTIONS (1)
  - Obsessive-compulsive disorder [Unknown]

NARRATIVE: CASE EVENT DATE: 20020610
